FAERS Safety Report 10086495 (Version 3)
Quarter: 2014Q2

REPORT INFORMATION
  Report Type: Spontaneous
  Country: JP (occurrence: JP)
  Receive Date: 20140418
  Receipt Date: 20140508
  Transmission Date: 20141212
  Serious: Yes (Hospitalization, Other)
  Sender: FDA-Public Use
  Company Number: JP-PFIZER INC-2014107712

PATIENT
  Age: 50 Year
  Sex: Male
  Weight: 55 kg

DRUGS (39)
  1. CAMPTO [Suspect]
     Indication: RECTAL CANCER
     Dosage: 300 MG, 1X/DAY
     Route: 041
     Dates: start: 20140115, end: 20140115
  2. CAMPTO [Suspect]
     Dosage: 300 MG, 1X/DAY
     Route: 041
     Dates: start: 20140129, end: 20140129
  3. CAMPTO [Suspect]
     Dosage: 300 MG, 1X/DAY
     Route: 041
     Dates: start: 20140210, end: 20140210
  4. CAMPTO [Suspect]
     Dosage: 300 MG, 1X/DAY
     Route: 041
     Dates: start: 20140225, end: 20140225
  5. CAMPTO [Suspect]
     Dosage: 300 MG, 1X/DAY
     Route: 041
     Dates: start: 20140311, end: 20140311
  6. CAMPTO [Suspect]
     Dosage: 300 MG, 1X/DAY
     Route: 041
     Dates: start: 20140325, end: 20140325
  7. LEVOLEUCOVORIN CALCIUM [Suspect]
     Indication: RECTAL CANCER
     Dosage: 325 MG, 1X/DAY
     Route: 041
     Dates: start: 20140115, end: 20140115
  8. LEVOLEUCOVORIN CALCIUM [Suspect]
     Dosage: 325 MG, 1X/DAY
     Route: 041
     Dates: start: 20140129, end: 20140129
  9. LEVOLEUCOVORIN CALCIUM [Suspect]
     Dosage: 325 MG, 1X/DAY
     Route: 041
     Dates: start: 20140210, end: 20140210
  10. LEVOLEUCOVORIN CALCIUM [Suspect]
     Dosage: 325 MG, 1X/DAY
     Route: 041
     Dates: start: 20140225, end: 20140225
  11. LEVOLEUCOVORIN CALCIUM [Suspect]
     Dosage: 325 MG, 1X/DAY
     Route: 041
     Dates: start: 20140311, end: 20140311
  12. LEVOLEUCOVORIN CALCIUM [Suspect]
     Dosage: 325 MG, 1X/DAY
     Route: 041
     Dates: start: 20140325, end: 20140325
  13. 5-FU [Suspect]
     Indication: RECTAL CANCER
     Dosage: 650 MG, 1X/DAY
     Route: 040
     Dates: start: 20140115, end: 20140115
  14. 5-FU [Suspect]
     Dosage: 4000 MG, ALTERNATE DAY
     Route: 041
     Dates: start: 20140115, end: 20140115
  15. 5-FU [Suspect]
     Dosage: 650 MG, 1X/DAY
     Route: 040
     Dates: start: 20140129, end: 20140129
  16. 5-FU [Suspect]
     Dosage: 4000 MG, ALTERNATE DAY
     Route: 041
     Dates: start: 20140129, end: 20140129
  17. 5-FU [Suspect]
     Dosage: 650 MG, 1X/DAY
     Route: 040
     Dates: start: 20140210, end: 20140210
  18. 5-FU [Suspect]
     Dosage: 4000 MG, ALTERNATE DAY
     Route: 041
     Dates: start: 20140210, end: 20140210
  19. 5-FU [Suspect]
     Dosage: 650 MG, 1X/DAY
     Route: 040
     Dates: start: 20140225, end: 20140225
  20. 5-FU [Suspect]
     Dosage: 4000 MG, ALTERNATE DAY
     Route: 041
     Dates: start: 20140225, end: 20140225
  21. 5-FU [Suspect]
     Dosage: 650 MG, 1X/DAY
     Route: 040
     Dates: start: 20140311, end: 20140311
  22. 5-FU [Suspect]
     Dosage: 4000 MG, ALTERNATE DAY
     Route: 041
     Dates: start: 20140311, end: 20140311
  23. 5-FU [Suspect]
     Dosage: 650 MG, 1X/DAY
     Route: 040
     Dates: start: 20140325, end: 20140325
  24. 5-FU [Suspect]
     Dosage: 4000 MG, ALTERNATE DAY
     Route: 041
     Dates: start: 20140325, end: 20140325
  25. AVE0005 [Suspect]
     Indication: RECTAL CANCER
     Dosage: 226.8 MG, 1X/DAY
     Route: 041
     Dates: start: 20140115, end: 20140115
  26. AVE0005 [Suspect]
     Dosage: 226.8 MG, 1X/DAY
     Route: 041
     Dates: start: 20140129, end: 20140129
  27. AVE0005 [Suspect]
     Dosage: 226.8 MG, 1X/DAY
     Route: 041
     Dates: start: 20140210, end: 20140210
  28. AVE0005 [Suspect]
     Dosage: 226.8 MG, 1X/DAY
     Route: 041
     Dates: start: 20140225, end: 20140225
  29. AVE0005 [Suspect]
     Dosage: 226.8 MG, 1X/DAY
     Route: 041
     Dates: start: 20140311, end: 20140311
  30. AVE0005 [Suspect]
     Dosage: 226.8 MG, 1X/DAY
     Route: 041
     Dates: start: 20140325, end: 20140325
  31. OXINORM [Concomitant]
     Dosage: UNK
     Dates: start: 20131206, end: 20140404
  32. LOXOPROFEN [Concomitant]
     Dosage: UNK
     Dates: start: 20131206, end: 20140404
  33. LANSOPRAZOLE [Concomitant]
     Dosage: UNK
     Dates: start: 20131206, end: 20140404
  34. DENOTAS [Concomitant]
     Dosage: UNK
     Dates: start: 20131211, end: 20140404
  35. OXYCONTIN [Concomitant]
     Dosage: UNK
     Dates: start: 20131212, end: 20140404
  36. MAGMITT [Concomitant]
     Dosage: UNK
     Dates: start: 20131213, end: 20140404
  37. RANMARK [Concomitant]
     Dosage: 120 MG/ BODY
     Dates: start: 20140325, end: 20140325
  38. EMEND [Concomitant]
     Dosage: UNK
     Dates: start: 20140325, end: 20140327
  39. DECADRON [Concomitant]
     Dosage: UNK
     Dates: start: 20140326, end: 20140327

REACTIONS (2)
  - Peritonitis [Recovering/Resolving]
  - Dysphonia [Unknown]
